FAERS Safety Report 25731207 (Version 1)
Quarter: 2025Q3

REPORT INFORMATION
  Report Type: Spontaneous
  Country: US (occurrence: None)
  Receive Date: 20250826
  Receipt Date: 20250826
  Transmission Date: 20251021
  Serious: Yes (Other)
  Sender: FDA-CTU
  Company Number: None

PATIENT
  Age: 33 Year
  Sex: Female
  Weight: 74.25 kg

DRUGS (7)
  1. LAMOTRIGINE [Suspect]
     Active Substance: LAMOTRIGINE
     Indication: Bipolar disorder
     Dosage: OTHER QUANTITY : 1 TABLET(S);?FREQUENCY : DAILY;?
     Route: 048
  2. Doxepin, [Concomitant]
  3. BUPROPION [Concomitant]
     Active Substance: BUPROPION
  4. Acetaminophen (as needed for headaches, menstrual cramps, pain), [Concomitant]
  5. ibuprofen (as needed for menstrual cramps), [Concomitant]
  6. naproxen(as needed for pain), [Concomitant]
  7. aspirin (as needed for headaches) [Concomitant]

REACTIONS (5)
  - Androgens increased [None]
  - Acne [None]
  - Acne cystic [None]
  - Oligomenorrhoea [None]
  - Hypomenorrhoea [None]

NARRATIVE: CASE EVENT DATE: 20250321
